FAERS Safety Report 12573832 (Version 3)
Quarter: 2018Q3

REPORT INFORMATION
  Report Type: Spontaneous
  Country: DE (occurrence: DE)
  Receive Date: 20160720
  Receipt Date: 20180720
  Transmission Date: 20181010
  Serious: Yes (Death, Other)
  Sender: FDA-Public Use
  Company Number: DE-TEVA-675256GER

PATIENT
  Age: 25 Year
  Sex: Female
  Weight: 55 kg

DRUGS (2)
  1. LOPERAMID [Suspect]
     Active Substance: LOPERAMIDE
     Indication: GASTROENTERITIS
     Dosage: 2 TABLETS OF 2MG LOPERAMIDE, FOLLOWED BY ANOTHER DOSE OF 2MG (TOTAL 6MG)
     Route: 048
     Dates: start: 20160622, end: 20160623
  2. IBUPROFEN. [Concomitant]
     Active Substance: IBUPROFEN
     Indication: ANALGESIC THERAPY
     Dosage: 600 MG

REACTIONS (10)
  - Brain injury [Fatal]
  - Toxicity to various agents [Unknown]
  - Sedation [Fatal]
  - Resuscitation [Fatal]
  - Disturbance in attention [Fatal]
  - Drug effect increased [Fatal]
  - Cardiac arrest [Unknown]
  - Aspiration [Fatal]
  - Coma [Unknown]
  - Food interaction [Fatal]

NARRATIVE: CASE EVENT DATE: 20160623
